FAERS Safety Report 15555268 (Version 2)
Quarter: 2018Q4

REPORT INFORMATION
  Report Type: Spontaneous
  Country: US (occurrence: US)
  Receive Date: 20181026
  Receipt Date: 20181110
  Transmission Date: 20190205
  Serious: No
  Sender: FDA-Public Use
  Company Number: US-TEVA-2018-US-967486

PATIENT
  Age: 75 Year
  Sex: Male
  Weight: 55 kg

DRUGS (3)
  1. PROAIR HFA [Suspect]
     Active Substance: ALBUTEROL SULFATE
     Indication: ASTHMA
     Route: 065
     Dates: start: 2016, end: 20181018
  2. ADVIL [Concomitant]
     Active Substance: IBUPROFEN
     Route: 065
  3. SYMBICORT [Concomitant]
     Active Substance: BUDESONIDE\FORMOTEROL FUMARATE DIHYDRATE
     Dosage: TWO PUFFS TWICE DAILY
     Route: 065

REACTIONS (5)
  - Dyspnoea [Recovering/Resolving]
  - Fatigue [Recovering/Resolving]
  - Asthenia [Unknown]
  - Blood iron decreased [Recovering/Resolving]
  - Weight decreased [Unknown]

NARRATIVE: CASE EVENT DATE: 201809
